FAERS Safety Report 18188937 (Version 1)
Quarter: 2020Q3

REPORT INFORMATION
  Report Type: Spontaneous
  Country: CN (occurrence: CN)
  Receive Date: 20200825
  Receipt Date: 20200825
  Transmission Date: 20201103
  Serious: Yes (Other)
  Sender: FDA-Public Use
  Company Number: CN-ROCHE-2662260

PATIENT
  Age: 64 Year
  Sex: Female

DRUGS (10)
  1. CAPECITABINE. [Suspect]
     Active Substance: CAPECITABINE
     Dosage: 1.5 G IN THE MORNING, 1.0 G AT NIGHT
     Route: 048
  2. CAPECITABINE. [Suspect]
     Active Substance: CAPECITABINE
     Dosage: 1.5 G IN THE MORNING, 1.0 G AT NIGHT
     Route: 048
     Dates: start: 20200322
  3. ETOPOSIDE. [Concomitant]
     Active Substance: ETOPOSIDE
     Indication: BREAST CANCER
     Route: 048
     Dates: start: 20200515
  4. LETROZOLE. [Concomitant]
     Active Substance: LETROZOLE
     Dates: start: 2018
  5. PIRARUBICIN [Concomitant]
     Active Substance: PIRARUBICIN
     Dosage: 70 MG DAY 1 (50 MG/M2) ONCE PER 21 DAYS
  6. CAPECITABINE. [Suspect]
     Active Substance: CAPECITABINE
     Indication: BREAST CANCER
     Route: 048
     Dates: start: 20191010
  7. DOCETAXEL. [Concomitant]
     Active Substance: DOCETAXEL
  8. DOCETAXEL. [Concomitant]
     Active Substance: DOCETAXEL
     Indication: BREAST CANCER
     Dates: start: 20191010
  9. PACLITAXEL. [Concomitant]
     Active Substance: PACLITAXEL
     Dosage: 240 MG DAY 2 (135?175 MG/M2) ONCE PER 21 DAYS
  10. APATINIB [Concomitant]
     Active Substance: APATINIB
     Indication: BREAST CANCER
     Route: 048
     Dates: start: 20200515

REACTIONS (2)
  - Myelosuppression [Unknown]
  - Gastrointestinal disorder [Unknown]
